FAERS Safety Report 21480587 (Version 1)
Quarter: 2022Q4

REPORT INFORMATION
  Report Type: Report from Study
  Country: US (occurrence: US)
  Receive Date: 20221019
  Receipt Date: 20221019
  Transmission Date: 20230113
  Serious: Yes (Hospitalization)
  Sender: FDA-Public Use
  Company Number: US-ABBVIE-4165037

PATIENT
  Sex: Female

DRUGS (2)
  1. VENCLEXTA [Suspect]
     Active Substance: VENETOCLAX
     Indication: Chronic lymphocytic leukaemia
     Route: 048
  2. VENCLEXTA [Suspect]
     Active Substance: VENETOCLAX
     Indication: Chronic lymphocytic leukaemia
     Route: 048

REACTIONS (8)
  - COVID-19 [Unknown]
  - Flatulence [Unknown]
  - Nephrolithiasis [Unknown]
  - Dizziness [Unknown]
  - Biliary colic [Unknown]
  - Fall [Unknown]
  - Constipation [Unknown]
  - Renal cyst [Unknown]
